FAERS Safety Report 14803790 (Version 1)
Quarter: 2018Q2

REPORT INFORMATION
  Report Type: Spontaneous
  Country: FR (occurrence: FR)
  Receive Date: 20180425
  Receipt Date: 20180425
  Transmission Date: 20180711
  Serious: Yes (Other)
  Sender: FDA-Public Use
  Company Number: FR-ASTRAZENECA-2018SE52531

PATIENT
  Age: 30 Year
  Sex: Female

DRUGS (1)
  1. XEROQUEL [Suspect]
     Active Substance: QUETIAPINE FUMARATE
     Indication: STRESS
     Dosage: 6.0DF ONCE/SINGLE ADMINISTRATION
     Route: 048
     Dates: start: 20180320, end: 20180320

REACTIONS (3)
  - Intentional product misuse [Not Recovered/Not Resolved]
  - Somnolence [Recovered/Resolved]
  - Vomiting [Recovered/Resolved]

NARRATIVE: CASE EVENT DATE: 2013
